FAERS Safety Report 9055040 (Version 2)
Quarter: 2013Q2

REPORT INFORMATION
  Report Type: Report from Study
  Country: TR (occurrence: TR)
  Receive Date: 20130206
  Receipt Date: 20130403
  Transmission Date: 20140414
  Serious: Yes (Other)
  Sender: FDA-Public Use
  Company Number: TR-ROCHE-1187934

PATIENT
  Sex: Female

DRUGS (1)
  1. CAPECITABINE [Suspect]
     Indication: NEOPLASM MALIGNANT
     Route: 048
     Dates: start: 201111, end: 201301

REACTIONS (2)
  - Mastectomy [Not Recovered/Not Resolved]
  - Breast operation [Not Recovered/Not Resolved]
